FAERS Safety Report 7630169-7 (Version None)
Quarter: 2011Q3

REPORT INFORMATION
  Report Type: 
  Country: None (occurrence: None)
  Receive Date: 20110722
  Receipt Date: 20110713
  Transmission Date: 20111222
  Serious: Yes (Hospitalization)
  Sender: FDA-Public Use
  Company Number: PHHO2011BE09799

PATIENT
  Sex: Male
  Weight: 19.5 kg

DRUGS (3)
  1. ILARIS [Suspect]
     Indication: JUVENILE ARTHRITIS
     Dosage: 4 MG/KG, ONCE EVERY 4 WEEKS
     Route: 048
     Dates: start: 20101124, end: 20110525
  2. METHYLPREDNISOLONE [Concomitant]
     Indication: JUVENILE ARTHRITIS
  3. OMEPRAZOLE [Concomitant]

REACTIONS (2)
  - HEPATITIS [None]
  - ARTHRALGIA [None]
